FAERS Safety Report 8894850 (Version 1)
Quarter: 2012Q4

REPORT INFORMATION
  Report Type: 
  Country: NL (occurrence: NL)
  Receive Date: 20121108
  Receipt Date: 20121108
  Transmission Date: 20130627
  Serious: Yes (Hospitalization)
  Sender: FDA-Public Use
  Company Number: NL-MYLANLABS-2012S1022402

PATIENT

DRUGS (1)
  1. RANITIDINE [Suspect]
     Route: 065

REACTIONS (1)
  - Urticaria [Unknown]
